FAERS Safety Report 21141489 (Version 1)
Quarter: 2022Q3

REPORT INFORMATION
  Report Type: Spontaneous
  Country: US (occurrence: None)
  Receive Date: 20220728
  Receipt Date: 20220728
  Transmission Date: 20221027
  Serious: Yes (Other)
  Sender: FDA-Public Use
  Company Number: US-ACS-20220068

PATIENT
  Sex: Male

DRUGS (1)
  1. CEFEPIME [Suspect]
     Active Substance: CEFEPIME HYDROCHLORIDE
     Indication: Infection
     Dosage: 1GM 2X/WK, 6 WKS

REACTIONS (2)
  - Product storage error [Unknown]
  - Adverse event [Recovered/Resolved]
